FAERS Safety Report 6718630-0 (Version None)
Quarter: 2010Q2

REPORT INFORMATION
  Report Type: 
  Country: None (occurrence: None)
  Receive Date: 20100505
  Receipt Date: 20100422
  Transmission Date: 20101027
  Serious: Yes (Other)
  Sender: FDA-Public Use
  Company Number: 167-20484-09071785

PATIENT
  Sex: Female

DRUGS (25)
  1. INNOHEP [Suspect]
     Indication: DRUG EXPOSURE DURING PREGNANCY
     Dosage: TRANSPLACENTAL, TRANSPLACENTAL, TRANSPLACENTAL, TRANSPLACENTAL, TRANSPLACENTAL
     Route: 064
     Dates: end: 20001002
  2. INNOHEP [Suspect]
     Indication: DRUG EXPOSURE DURING PREGNANCY
     Dosage: TRANSPLACENTAL, TRANSPLACENTAL, TRANSPLACENTAL, TRANSPLACENTAL, TRANSPLACENTAL
     Route: 064
     Dates: start: 20001101, end: 20001101
  3. INNOHEP [Suspect]
     Indication: DRUG EXPOSURE DURING PREGNANCY
     Dosage: TRANSPLACENTAL, TRANSPLACENTAL, TRANSPLACENTAL, TRANSPLACENTAL, TRANSPLACENTAL
     Route: 064
     Dates: start: 20001003, end: 20001102
  4. INNOHEP [Suspect]
     Indication: DRUG EXPOSURE DURING PREGNANCY
     Dosage: TRANSPLACENTAL, TRANSPLACENTAL, TRANSPLACENTAL, TRANSPLACENTAL, TRANSPLACENTAL
     Route: 064
     Dates: start: 20001102, end: 20001102
  5. INNOHEP [Suspect]
     Indication: DRUG EXPOSURE DURING PREGNANCY
     Dosage: TRANSPLACENTAL, TRANSPLACENTAL, TRANSPLACENTAL, TRANSPLACENTAL, TRANSPLACENTAL
     Route: 064
     Dates: start: 20001103
  6. PREDNISOLONE [Concomitant]
  7. FLUCONAZOLE [Concomitant]
  8. AMOXICILLIN [Concomitant]
  9. CALCIUM AND VITAMIN D (ERGOCALCIFEROL, CALCIUM) [Concomitant]
  10. LACTULOSE [Concomitant]
  11. ASPIRIN [Concomitant]
  12. LOSEC (OMEPRAZOLE) [Concomitant]
  13. VANCOMYCIN [Concomitant]
  14. GENTAMICIN [Concomitant]
  15. CEFTAZIDIME [Concomitant]
  16. FUROSEMIDE [Concomitant]
  17. PIPERACILLIN SODIUM AND TAZOBACTAM SODIUM [Concomitant]
  18. BETAMETHASONE [Concomitant]
  19. AZATHIOPRINE [Concomitant]
  20. OMEPAZOLE (OMEPAZOLE) [Concomitant]
  21. LIGNOCAINE (LIDOCAINE HYDROCHLORIDE) (2 PERCENT) [Concomitant]
  22. BUPIVICAINE (BUPIVACAINE HYDROCHLORIDE) [Concomitant]
  23. FENTANYL-100 [Concomitant]
  24. SYNTOCINON [Concomitant]
  25. METOCLOPRAMIDE (METOCLOPRAMIDE) [Concomitant]

REACTIONS (9)
  - CAESAREAN SECTION [None]
  - FOETAL DISORDER [None]
  - FOETAL GROWTH RETARDATION [None]
  - JAUNDICE NEONATAL [None]
  - LUNG DISORDER [None]
  - MATERNAL DRUGS AFFECTING FOETUS [None]
  - PREMATURE BABY [None]
  - PULMONARY MALFORMATION [None]
  - THROMBOCYTOPENIA NEONATAL [None]
